FAERS Safety Report 10302774 (Version 1)
Quarter: 2014Q3

REPORT INFORMATION
  Report Type: Spontaneous
  Country: GB (occurrence: GB)
  Receive Date: 20140714
  Receipt Date: 20140714
  Transmission Date: 20150326
  Serious: Yes (Hospitalization)
  Sender: FDA-Public Use
  Company Number: GB-TEVA-493152ISR

PATIENT
  Age: 69 Year
  Sex: Male
  Weight: 96.61 kg

DRUGS (2)
  1. ATORVASTATIN [Concomitant]
     Active Substance: ATORVASTATIN
     Indication: HYPERTENSION
     Dates: start: 2004
  2. RAMIPRIL. [Suspect]
     Active Substance: RAMIPRIL
     Indication: HYPERTENSION
     Route: 048

REACTIONS (4)
  - Arrhythmia [Recovered/Resolved]
  - Lower respiratory tract infection [Recovered/Resolved]
  - Atrial fibrillation [Recovered/Resolved]
  - Pericarditis [Unknown]
